FAERS Safety Report 10351757 (Version 2)
Quarter: 2014Q4

REPORT INFORMATION
  Report Type: Other
  Country: IT (occurrence: IT)
  Receive Date: 20140730
  Receipt Date: 20141105
  Transmission Date: 20150528
  Serious: Yes (Hospitalization)
  Sender: FDA-Public Use
  Company Number: IT-MYLAN-2014S1017817

PATIENT

DRUGS (2)
  1. DICLOFENAC SODIUM. [Suspect]
     Active Substance: DICLOFENAC SODIUM
     Indication: TORTICOLLIS
     Dosage: 1 DF,UNK
     Route: 048
     Dates: start: 20140422, end: 20140422
  2. DICLOFENAC HYDROXYETHYLPYRROLIDINE [Suspect]
     Active Substance: DICLOFENAC EPOLAMINE
     Indication: TORTICOLLIS
     Dosage: 1 DF,UNK
     Route: 062
     Dates: start: 20140422, end: 20140422

REACTIONS (2)
  - Asthmatic crisis [Recovering/Resolving]
  - Bronchospasm [Recovering/Resolving]

NARRATIVE: CASE EVENT DATE: 20140423
